FAERS Safety Report 18072558 (Version 1)
Quarter: 2020Q3

REPORT INFORMATION
  Report Type: Spontaneous
  Country: US (occurrence: US)
  Receive Date: 20200726
  Receipt Date: 20200726
  Transmission Date: 20201103
  Serious: No
  Sender: FDA-Public Use
  Company Number: None

PATIENT
  Age: 21 Year
  Sex: Male
  Weight: 65.25 kg

DRUGS (1)
  1. VITAMIN D2 [Suspect]
     Active Substance: ERGOCALCIFEROL
     Indication: VITAMIN D DEFICIENCY
     Dosage: ?          QUANTITY:1 CAPSULE(S);OTHER FREQUENCY:TWICE WEEKLY;?
     Route: 048
     Dates: start: 20200714, end: 20200716

REACTIONS (5)
  - Fatigue [None]
  - Decreased appetite [None]
  - Dizziness [None]
  - Chest discomfort [None]
  - Overdose [None]
